FAERS Safety Report 5940011-8 (Version None)
Quarter: 2008Q4

REPORT INFORMATION
  Report Type: 
  Country: None (occurrence: None)
  Receive Date: 20081104
  Receipt Date: 20080313
  Transmission Date: 20090506
  Serious: No
  Sender: FDA-Public Use
  Company Number: US-BAYER-200811278BCC

PATIENT
  Age: 80 Year
  Sex: Female
  Weight: 71 kg

DRUGS (6)
  1. ALEVE (CAPLET) [Suspect]
     Indication: BACK PAIN
     Dosage: TOTAL DAILY DOSE: 880 MG  UNIT DOSE: 220 MG
     Route: 048
     Dates: start: 20080313
  2. TOPROL-XL [Concomitant]
  3. LIPITOR [Concomitant]
  4. COZAAR [Concomitant]
  5. AMIODARONE HCL [Concomitant]
  6. ACTOS [Concomitant]

REACTIONS (1)
  - NO ADVERSE EVENT [None]
